FAERS Safety Report 20070067 (Version 1)
Quarter: 2021Q4

REPORT INFORMATION
  Report Type: Spontaneous
  Country: US (occurrence: US)
  Receive Date: 20211115
  Receipt Date: 20211115
  Transmission Date: 20220303
  Serious: No
  Sender: FDA-Public Use
  Company Number: US-SA-SAC20211110000064

PATIENT
  Age: 50 Year
  Sex: Female

DRUGS (13)
  1. DUPIXENT [Suspect]
     Active Substance: DUPILUMAB
     Indication: Dermatitis
     Dosage: 300 MG, QOW
     Route: 058
     Dates: start: 20180920
  2. ORENCIA [Concomitant]
     Active Substance: ABATACEPT
  3. CYMBALTA [Concomitant]
     Active Substance: DULOXETINE HYDROCHLORIDE
  4. GABAPENTIN [Concomitant]
     Active Substance: GABAPENTIN
  5. OMEPRAZOLE [Concomitant]
     Active Substance: OMEPRAZOLE
  6. TEGRETOL [Concomitant]
     Active Substance: CARBAMAZEPINE
  7. TOPAMAX [Concomitant]
     Active Substance: TOPIRAMATE
  8. XANAX [Concomitant]
     Active Substance: ALPRAZOLAM
  9. TRAZODONE [Concomitant]
     Active Substance: TRAZODONE HYDROCHLORIDE
  10. KEPPRA [Concomitant]
     Active Substance: LEVETIRACETAM
  11. IMITREX [Concomitant]
     Active Substance: SUMATRIPTAN SUCCINATE
  12. MAGNESIUM [Concomitant]
     Active Substance: MAGNESIUM
  13. OXYCODONE [Concomitant]
     Active Substance: OXYCODONE

REACTIONS (2)
  - Dermatitis [Not Recovered/Not Resolved]
  - Product use in unapproved indication [Unknown]

NARRATIVE: CASE EVENT DATE: 20180920
